FAERS Safety Report 7961104-X (Version None)
Quarter: 2011Q4

REPORT INFORMATION
  Report Type: 
  Country: None (occurrence: None)
  Receive Date: 20111207
  Receipt Date: 20111123
  Transmission Date: 20120403
  Serious: Yes (Hospitalization)
  Sender: FDA-Public Use
  Company Number: FR-MYLANLABS-2011S1024173

PATIENT
  Age: 76 Year
  Sex: Female

DRUGS (2)
  1. GEMCITABINE [Suspect]
     Route: 042
     Dates: start: 20110918, end: 20110929
  2. VANCOMYCIN [Suspect]
     Route: 042
     Dates: start: 20110918, end: 20110929

REACTIONS (2)
  - DRUG LEVEL INCREASED [None]
  - RENAL FAILURE ACUTE [None]
